FAERS Safety Report 4735881-5 (Version None)
Quarter: 2005Q3

REPORT INFORMATION
  Report Type: 
  Country: None (occurrence: None)
  Receive Date: 20050804
  Receipt Date: 20050804
  Transmission Date: 20060218
  Serious: Yes (Death)
  Sender: FDA-Public Use
  Company Number: None

PATIENT
  Age: 56 Year
  Sex: Male

DRUGS (2)
  1. LOMUSTINE (CCNU) [Suspect]
     Indication: NON-HODGKIN'S LYMPHOMA
     Dosage: 100 MG DAY 1 PO
     Route: 048
     Dates: start: 20050401
  2. ETOPOSIDE [Suspect]
     Indication: NON-HODGKIN'S LYMPHOMA
     Dosage: 200 MG DAY 1-3 PO
     Route: 048
     Dates: start: 20050401, end: 20050403

REACTIONS (6)
  - COMMUNICATION DISORDER [None]
  - COMPLETED SUICIDE [None]
  - CONFUSIONAL STATE [None]
  - DELIRIUM [None]
  - GASTROENTERITIS [None]
  - REFUSAL OF TREATMENT BY PATIENT [None]
